FAERS Safety Report 5483662-X (Version None)
Quarter: 2007Q4

REPORT INFORMATION
  Report Type: 
  Country: None (occurrence: None)
  Receive Date: 20071012
  Receipt Date: 20071003
  Transmission Date: 20080405
  Serious: Yes (Other)
  Sender: FDA-Public Use
  Company Number: AR-ELI_LILLY_AND_COMPANY-AR200710001466

PATIENT
  Age: 59 Year
  Sex: Female
  Weight: 130 kg

DRUGS (4)
  1. BYETTA [Suspect]
     Indication: TYPE 2 DIABETES MELLITUS
     Dosage: 5UG, DAILY EXPECPT ON SUNDAYS
     Route: 058
     Dates: start: 20070701
  2. HEPARIN [Concomitant]
     Dosage: UNK UNK, 3/W
     Route: 065
     Dates: start: 20050101
  3. EPOGEN [Concomitant]
     Indication: ANAEMIA
     Dosage: 4000 IU, WEEKLY (1/W)
     Dates: start: 20060101
  4. EPOGEN [Concomitant]
     Dosage: 6000 IU, UNKNOWN
     Route: 065

REACTIONS (6)
  - ANAEMIA [None]
  - ANOREXIA [None]
  - INJECTION SITE HAEMORRHAGE [None]
  - PALPITATIONS [None]
  - RECTAL HAEMORRHAGE [None]
  - SUBCUTANEOUS HAEMATOMA [None]
